FAERS Safety Report 9934247 (Version 2)
Quarter: 2014Q1

REPORT INFORMATION
  Report Type: Spontaneous
  Country: JP (occurrence: JP)
  Receive Date: 20140228
  Receipt Date: 20140228
  Transmission Date: 20141002
  Serious: Yes (Death, Other)
  Sender: FDA-Public Use
  Company Number: JP-CELGENEUS-087-21880-13115459

PATIENT
  Age: 59 Year
  Sex: Female
  Weight: 53.3 kg

DRUGS (16)
  1. REVLIMID [Suspect]
     Indication: MYELODYSPLASTIC SYNDROME
     Dosage: 10 MILLIGRAM
     Route: 048
     Dates: start: 20120625, end: 20121011
  2. VIDAZA [Suspect]
     Indication: MYELODYSPLASTIC SYNDROME
     Dosage: 100 MILLIGRAM
     Route: 041
     Dates: start: 20121127, end: 20130119
  3. BUSULFAN [Concomitant]
     Indication: PRODUCT USED FOR UNKNOWN INDICATION
     Route: 065
  4. CYCLOPHOSPHAMIDE [Concomitant]
     Indication: PRODUCT USED FOR UNKNOWN INDICATION
     Route: 065
  5. MYLOTARG [Concomitant]
     Indication: MYELODYSPLASTIC SYNDROME
     Route: 041
     Dates: start: 20130917, end: 20130917
  6. BUFFERIN [Concomitant]
     Indication: HEADACHE
     Dosage: 81 MILLIGRAM
     Route: 048
     Dates: end: 20121001
  7. BACTRAMIN [Concomitant]
     Indication: INFECTION PROPHYLAXIS
     Dosage: 1 TABLET
     Route: 048
     Dates: end: 20130927
  8. PARIET [Concomitant]
     Indication: PROPHYLAXIS AGAINST GASTROINTESTINAL ULCER
     Dosage: 10 MILLIGRAM
     Route: 048
     Dates: end: 20130927
  9. UROMITEXAN [Concomitant]
     Indication: CYSTITIS HAEMORRHAGIC
     Dosage: 5100 MILLIGRAM
     Route: 041
     Dates: start: 20130225, end: 20130226
  10. GRANISETRON [Concomitant]
     Indication: ANTIEMETIC SUPPORTIVE CARE
     Dosage: 3 MILLIGRAM
     Route: 041
     Dates: start: 20130116, end: 20130119
  11. GRANISETRON [Concomitant]
     Dosage: 6 MILLIGRAM
     Route: 041
     Dates: start: 20130220, end: 20130224
  12. PROGRAF [Concomitant]
     Indication: PROPHYLAXIS AGAINST GRAFT VERSUS HOST DISEASE
     Dosage: 1.7-2.4MG
     Route: 041
     Dates: start: 20130227, end: 20130330
  13. RED BLOOD CELL TRANSFUSION [Concomitant]
     Indication: PRODUCT USED FOR UNKNOWN INDICATION
     Route: 041
     Dates: start: 20121002, end: 20121126
  14. RED BLOOD CELL TRANSFUSION [Concomitant]
     Route: 041
     Dates: start: 20121226
  15. PLATELET TRANSFUSION [Concomitant]
     Indication: PRODUCT USED FOR UNKNOWN INDICATION
     Route: 041
     Dates: start: 20121230
  16. HYDREA [Concomitant]
     Indication: ACUTE MYELOID LEUKAEMIA
     Route: 065
     Dates: start: 20130824

REACTIONS (3)
  - Acute myeloid leukaemia [Fatal]
  - Thrombocytopenia [Not Recovered/Not Resolved]
  - Rash [Recovered/Resolved]
